FAERS Safety Report 19460034 (Version 1)
Quarter: 2021Q2

REPORT INFORMATION
  Report Type: Spontaneous
  Country: FR (occurrence: FR)
  Receive Date: 20210625
  Receipt Date: 20210625
  Transmission Date: 20210717
  Serious: Yes (Other)
  Sender: FDA-Public Use
  Company Number: FR-SUN PHARMACEUTICAL INDUSTRIES LTD-2021RR-302057

PATIENT
  Age: 61 Year
  Sex: Male
  Weight: 77 kg

DRUGS (2)
  1. AZITHROMYCIN ANHYDROUS. [Suspect]
     Active Substance: AZITHROMYCIN ANHYDROUS
     Indication: COVID-19
     Dosage: ()
     Route: 048
     Dates: start: 20210409, end: 20210413
  2. ROACTEMRA 20 MG/ML, SOLUTION A DILUER POUR PERFUSION [Suspect]
     Active Substance: TOCILIZUMAB
     Indication: COVID-19
     Dosage: IN TOTAL
     Route: 042
     Dates: start: 20210415, end: 20210415

REACTIONS (1)
  - Hepatocellular injury [Recovering/Resolving]

NARRATIVE: CASE EVENT DATE: 20210419
